FAERS Safety Report 14318038 (Version 1)
Quarter: 2017Q4

REPORT INFORMATION
  Report Type: Spontaneous
  Country: GB (occurrence: GB)
  Receive Date: 20171222
  Receipt Date: 20171222
  Transmission Date: 20180321
  Serious: Yes (Other)
  Sender: FDA-Public Use
  Company Number: GB-AMGEN-GBRSP2017186672

PATIENT
  Sex: Female

DRUGS (1)
  1. PROLIA [Suspect]
     Active Substance: DENOSUMAB
     Indication: PRODUCT USED FOR UNKNOWN INDICATION
     Dosage: UNK
     Route: 065
     Dates: start: 2014

REACTIONS (8)
  - Myalgia [Unknown]
  - Fall [Unknown]
  - Hypoparathyroidism [Unknown]
  - Upper limb fracture [Not Recovered/Not Resolved]
  - Adrenal insufficiency [Unknown]
  - Anxiety [Unknown]
  - Hypotension [Unknown]
  - Ill-defined disorder [Unknown]
